FAERS Safety Report 4676079-9 (Version None)
Quarter: 2005Q2

REPORT INFORMATION
  Report Type: 
  Country: None (occurrence: None)
  Receive Date: 20050525
  Receipt Date: 20050126
  Transmission Date: 20051028
  Serious: Yes (Other)
  Sender: FDA-Public Use
  Company Number: PHHO2005FR01714

PATIENT
  Age: 69 Year
  Sex: Male
  Weight: 64 kg

DRUGS (7)
  1. ZOLEDRONIC ACID [Suspect]
     Indication: METASTASES TO BONE
     Dosage: 4 MG, QMO
     Route: 042
     Dates: start: 20030929, end: 20050125
  2. CISPLATIN [Suspect]
     Indication: LUNG NEOPLASM MALIGNANT
  3. TAXOTERE [Suspect]
     Indication: LUNG NEOPLASM MALIGNANT
     Dates: start: 20040101, end: 20040101
  4. GEMCITABINE [Suspect]
     Indication: LUNG NEOPLASM MALIGNANT
     Dates: start: 20040301, end: 20040601
  5. RADIOTHERAPY [Suspect]
     Dosage: 30 GRAYS
     Dates: start: 20040223, end: 20040311
  6. SOLUPRED [Suspect]
  7. AUGMENTIN '125' [Concomitant]

REACTIONS (4)
  - GINGIVAL INFECTION [None]
  - MALIGNANT NEOPLASM PROGRESSION [None]
  - OSTEONECROSIS [None]
  - SEQUESTRECTOMY [None]
